FAERS Safety Report 21165816 (Version 3)
Quarter: 2022Q3

REPORT INFORMATION
  Report Type: Report from Study
  Country: US (occurrence: None)
  Receive Date: 20220803
  Receipt Date: 20220812
  Transmission Date: 20221027
  Serious: Yes (Hospitalization, Other)
  Sender: FDA-Public Use
  Company Number: US-ROCHE-3149959

PATIENT
  Age: 69 Year
  Sex: Male
  Weight: 53.4 kg

DRUGS (16)
  1. PLACEBO [Suspect]
     Active Substance: UNSPECIFIED INGREDIENT
     Indication: Squamous cell carcinoma of head and neck
     Dosage: ON 07/APR/2022 HE RECEIVED THE MOST RECENT DOSE OF TIRAGOLUMAB  PRIOR TO AE/SAE
     Route: 042
     Dates: start: 20220314
  2. ATEZOLIZUMAB [Suspect]
     Active Substance: ATEZOLIZUMAB
     Indication: Squamous cell carcinoma of head and neck
     Dosage: ON 07/APR/2022 HE RECIVED THE MOST RECENT DOSE OF ATEZOLIZUMAB(1200MG) PRIOR TO AE/SAE.
     Route: 041
     Dates: start: 20220314
  3. AMLODIPINE [Concomitant]
     Active Substance: AMLODIPINE BESYLATE
     Indication: Hypertension
     Route: 048
     Dates: end: 20220407
  4. CHLORHEXIDINE [Concomitant]
     Active Substance: CHLORHEXIDINE
     Indication: Oral pain
     Route: 048
     Dates: start: 20211213
  5. LEVOTHYROXINE [Concomitant]
     Active Substance: LEVOTHYROXINE
     Indication: Hypothyroidism
     Dosage: 50 OTHER
     Route: 048
     Dates: start: 20220228, end: 20220328
  6. LIDOCAINE [Concomitant]
     Active Substance: LIDOCAINE
     Indication: Neck pain
     Route: 062
     Dates: start: 20220203, end: 20220407
  7. LISINOPRIL [Concomitant]
     Active Substance: LISINOPRIL
     Indication: Hypertension
     Route: 048
     Dates: start: 20200915, end: 20220418
  8. MIRTAZAPINE [Concomitant]
     Active Substance: MIRTAZAPINE
     Indication: Neck pain
     Route: 048
     Dates: start: 20220303, end: 20220328
  9. POLYETHYLENE GLYCOL [Concomitant]
     Active Substance: POLYETHYLENE GLYCOL
     Indication: Constipation
     Route: 048
     Dates: start: 20220203, end: 20220407
  10. SENNA [Concomitant]
     Active Substance: SENNA LEAF\SENNOSIDES\SENNOSIDES A AND B
     Indication: Constipation
     Route: 048
     Dates: start: 20220310, end: 20220418
  11. SIMVASTATIN [Concomitant]
     Active Substance: SIMVASTATIN
     Indication: Blood cholesterol increased
     Route: 048
     Dates: start: 20201007, end: 20220418
  12. TAMSULOSIN [Concomitant]
     Active Substance: TAMSULOSIN
     Indication: Neck pain
     Route: 048
     Dates: start: 20220302, end: 20220328
  13. GABAPENTIN [Concomitant]
     Active Substance: GABAPENTIN
     Route: 048
     Dates: start: 20220310, end: 20220407
  14. CYANOCOBALAMIN [Concomitant]
     Active Substance: CYANOCOBALAMIN
     Dosage: 500 OTHER
     Route: 048
     Dates: start: 20210927, end: 20220407
  15. HYDROCODONE [Concomitant]
     Active Substance: HYDROCODONE
     Indication: Cancer pain
     Route: 048
     Dates: start: 20220228, end: 20220310
  16. TRAZODONE [Concomitant]
     Active Substance: TRAZODONE HYDROCHLORIDE
     Indication: Insomnia
     Route: 048
     Dates: start: 20211210, end: 20220310

REACTIONS (2)
  - Dysphagia [Not Recovered/Not Resolved]
  - Lymphocyte count decreased [Not Recovered/Not Resolved]

NARRATIVE: CASE EVENT DATE: 20220407
